FAERS Safety Report 12348207 (Version 1)
Quarter: 2016Q2

REPORT INFORMATION
  Report Type: Spontaneous
  Country: US (occurrence: US)
  Receive Date: 20160509
  Receipt Date: 20160509
  Transmission Date: 20160815
  Serious: No
  Sender: FDA-Public Use
  Company Number: US-MISSION PHARMACAL COMPANY-1051704

PATIENT
  Sex: Male

DRUGS (2)
  1. POTASSIUM CITRATE. [Suspect]
     Active Substance: POTASSIUM CITRATE
  2. THIOLA [Concomitant]
     Active Substance: TIOPRONIN
     Route: 065

REACTIONS (4)
  - Lymph node pain [Unknown]
  - Back pain [Unknown]
  - Nephrolithiasis [Unknown]
  - Lymphadenopathy [Unknown]
